FAERS Safety Report 24856824 (Version 1)
Quarter: 2025Q1

REPORT INFORMATION
  Report Type: Spontaneous
  Country: CZ (occurrence: CZ)
  Receive Date: 20250117
  Receipt Date: 20250117
  Transmission Date: 20250409
  Serious: Yes (Death, Life-Threatening, Hospitalization, Other)
  Sender: MYLAN
  Company Number: None

PATIENT
  Age: 63 Year
  Sex: Male

DRUGS (10)
  1. TACROLIMUS [Suspect]
     Active Substance: TACROLIMUS
     Indication: Immunosuppressant drug therapy
     Route: 065
     Dates: start: 2012
  2. MYCOPHENOLIC ACID [Suspect]
     Active Substance: MYCOPHENOLIC ACID
     Indication: Immunosuppressant drug therapy
     Route: 065
     Dates: start: 2012
  3. PREDNISONE [Suspect]
     Active Substance: PREDNISONE
     Indication: Immunosuppressant drug therapy
     Route: 065
     Dates: start: 2012
  4. PREDNISONE [Suspect]
     Active Substance: PREDNISONE
     Route: 065
  5. AMOXICILLIN\CLAVULANIC ACID [Concomitant]
     Active Substance: AMOXICILLIN\CLAVULANIC ACID
     Indication: Evidence based treatment
     Dosage: 1.2 GRAM, TID (8 HOURS)
     Route: 042
     Dates: start: 2012
  6. PIPERACILLIN AND TAZOBACTAM [Concomitant]
     Active Substance: PIPERACILLIN SODIUM\TAZOBACTAM SODIUM
     Indication: Evidence based treatment
     Dosage: 4.5 GRAM, TID (8 HOURS)
     Route: 042
     Dates: start: 2012
  7. FLUCONAZOLE [Concomitant]
     Active Substance: FLUCONAZOLE
     Indication: Bronchopulmonary aspergillosis
     Route: 065
  8. VORICONAZOLE [Concomitant]
     Active Substance: VORICONAZOLE
     Indication: Bronchopulmonary aspergillosis
     Dosage: 200 MILLIGRAM, BID (12 HOURS)A
     Route: 065
     Dates: start: 2012
  9. AMPHOTERICIN B [Concomitant]
     Active Substance: AMPHOTERICIN B
     Indication: Bronchopulmonary aspergillosis
     Dosage: 5 MICROGRAM/KILOGRAM, QD
     Route: 065
     Dates: start: 2012
  10. FILGRASTIM [Concomitant]
     Active Substance: FILGRASTIM
     Indication: Neutropenia
     Route: 065
     Dates: start: 2012

REACTIONS (12)
  - Neutropenia [Fatal]
  - Leukopenia [Fatal]
  - Sepsis [Fatal]
  - Respiratory failure [Fatal]
  - Pneumonia [Fatal]
  - Drug ineffective [Fatal]
  - Abscess [Fatal]
  - Necrosis [Fatal]
  - Escherichia infection [Fatal]
  - Pseudomonas infection [Fatal]
  - Bronchopulmonary aspergillosis [Recovering/Resolving]
  - Cytomegalovirus infection [Unknown]

NARRATIVE: CASE EVENT DATE: 20120101
